FAERS Safety Report 4851405-6 (Version None)
Quarter: 2005Q4

REPORT INFORMATION
  Report Type: 
  Country: None (occurrence: None)
  Receive Date: 20051212
  Receipt Date: 20051026
  Transmission Date: 20060501
  Serious: Yes (Hospitalization)
  Sender: FDA-Public Use
  Company Number: JP-AVENTIS-200513226JP

PATIENT
  Age: 60 Year
  Sex: Male

DRUGS (3)
  1. INSULIN NOS [Suspect]
     Indication: DIABETES MELLITUS
  2. GLUCOBAY [Concomitant]
     Indication: DIABETES MELLITUS
  3. METFORMIN HCL [Concomitant]
     Indication: DIABETES MELLITUS

REACTIONS (7)
  - ANAEMIA [None]
  - BLOOD CREATININE INCREASED [None]
  - BLOOD UREA INCREASED [None]
  - BRAIN OEDEMA [None]
  - CHOREA [None]
  - HYPOGLYCAEMIA [None]
  - MOVEMENT DISORDER [None]
